FAERS Safety Report 23140449 (Version 1)
Quarter: 2023Q4

REPORT INFORMATION
  Report Type: Report from Study
  Country: CO (occurrence: CO)
  Receive Date: 20231102
  Receipt Date: 20231102
  Transmission Date: 20240109
  Serious: Yes (Other)
  Sender: FDA-Public Use
  Company Number: CO-ABBVIE-5477503

PATIENT
  Age: 70 Year
  Sex: Male
  Weight: 80 kg

DRUGS (1)
  1. SKYRIZI [Suspect]
     Active Substance: RISANKIZUMAB-RZAA
     Indication: Psoriasis
     Dosage: FORM STRENGTH 150 MILLIGRAMS
     Route: 058
     Dates: start: 20220214

REACTIONS (3)
  - Cardiac pacemaker replacement [Recovering/Resolving]
  - Procedural complication [Recovering/Resolving]
  - Cardiac operation [Unknown]

NARRATIVE: CASE EVENT DATE: 20230928
